FAERS Safety Report 14269221 (Version 2)
Quarter: 2017Q4

REPORT INFORMATION
  Report Type: Spontaneous
  Country: JP (occurrence: JP)
  Receive Date: 20171211
  Receipt Date: 20171221
  Transmission Date: 20180321
  Serious: Yes (Death)
  Sender: FDA-Public Use
  Company Number: JP-ELI_LILLY_AND_COMPANY-JP201712002077AA

PATIENT
  Age: 68 Year
  Sex: Male
  Weight: 48 kg

DRUGS (5)
  1. FLUOROURACIL. [Concomitant]
     Active Substance: FLUOROURACIL
     Dosage: 2135 MG, SINGLE
     Route: 042
     Dates: start: 20171031, end: 20171031
  2. CALCIUM LEVOFOLINATE [Concomitant]
     Active Substance: LEVOLEUCOVORIN CALCIUM
     Dosage: 300 MG, SINGLE
     Route: 041
     Dates: start: 20171031, end: 20171031
  3. CYRAMZA [Suspect]
     Active Substance: RAMUCIRUMAB
     Indication: RECTAL ADENOCARCINOMA
     Dosage: 380 MG, SINGLE
     Route: 041
     Dates: start: 20171031, end: 20171031
  4. FLUOROURACIL. [Concomitant]
     Active Substance: FLUOROURACIL
     Indication: RECTAL ADENOCARCINOMA
     Dosage: 4430 MG, OTHER
     Route: 042
     Dates: start: 20170426, end: 20171010
  5. CALCIUM LEVOFOLINATE [Concomitant]
     Active Substance: LEVOLEUCOVORIN CALCIUM
     Indication: RECTAL ADENOCARCINOMA
     Dosage: 320 MG, OTHER
     Route: 041
     Dates: start: 20170426, end: 20171010

REACTIONS (3)
  - Decreased activity [Unknown]
  - Decreased appetite [Unknown]
  - Sudden death [Fatal]

NARRATIVE: CASE EVENT DATE: 20171103
